FAERS Safety Report 19401460 (Version 1)
Quarter: 2021Q2

REPORT INFORMATION
  Report Type: Spontaneous
  Country: CA (occurrence: CA)
  Receive Date: 20210610
  Receipt Date: 20210610
  Transmission Date: 20210717
  Serious: Yes (Other)
  Sender: FDA-Public Use
  Company Number: CA-ROCHE-2844535

PATIENT
  Age: 69 Year
  Sex: Female
  Weight: 49 kg

DRUGS (6)
  1. ACTEMRA [Suspect]
     Active Substance: TOCILIZUMAB
     Indication: RHEUMATOID ARTHRITIS
     Route: 042
  2. PREDNISONE. [Concomitant]
     Active Substance: PREDNISONE
  3. SYNTHROID [Concomitant]
     Active Substance: LEVOTHYROXINE SODIUM
  4. ARTHROTEC [Concomitant]
     Active Substance: DICLOFENAC SODIUM\MISOPROSTOL
  5. SULFASALAZINE. [Suspect]
     Active Substance: SULFASALAZINE
     Indication: PRODUCT USED FOR UNKNOWN INDICATION
     Route: 065
  6. ACLASTA [Concomitant]
     Active Substance: ZOLEDRONIC ACID
     Indication: OSTEOPOROSIS
     Route: 042

REACTIONS (9)
  - Blood pressure diastolic abnormal [Unknown]
  - Eye discharge [Unknown]
  - Heart rate decreased [Unknown]
  - Blood pressure diastolic increased [Unknown]
  - Drug hypersensitivity [Unknown]
  - Mouth ulceration [Unknown]
  - Rectal ulcer [Unknown]
  - Weight decreased [Unknown]
  - Oxygen saturation decreased [Unknown]
